FAERS Safety Report 10136674 (Version 3)
Quarter: 2014Q3

REPORT INFORMATION
  Report Type: Report from Study
  Country: RS (occurrence: RS)
  Receive Date: 20140429
  Receipt Date: 20140811
  Transmission Date: 20150326
  Serious: Yes (Hospitalization, Other)
  Sender: FDA-Public Use
  Company Number: RS-JNJFOC-20140413845

PATIENT
  Age: 23 Year
  Sex: Female
  Weight: 55 kg

DRUGS (12)
  1. HEFEROL [Concomitant]
     Indication: ANAEMIA
     Route: 048
     Dates: start: 20140320, end: 20140415
  2. METHYLPREDNISOLONE [Concomitant]
     Active Substance: METHYLPREDNISOLONE
     Indication: PSORIATIC ARTHROPATHY
     Route: 042
     Dates: start: 20140320, end: 20140326
  3. HUMAN ALBUMIN [Concomitant]
     Active Substance: ALBUMIN (HUMAN)
     Indication: HYPOALBUMINAEMIA
     Route: 042
     Dates: start: 20140418
  4. LONGACEPH [Concomitant]
     Indication: SKIN LESION
     Route: 042
     Dates: start: 20140318, end: 20140327
  5. STELARA [Suspect]
     Active Substance: USTEKINUMAB
     Indication: PSORIASIS
     Route: 058
     Dates: start: 20140403, end: 20140715
  6. METHOTREXATE [Concomitant]
     Active Substance: METHOTREXATE
     Indication: PSORIATIC ARTHROPATHY
     Route: 048
     Dates: start: 201311, end: 20140409
  7. LONGACEPH [Concomitant]
     Indication: STAPHYLOCOCCAL INFECTION
     Route: 042
     Dates: start: 20140318, end: 20140327
  8. STELARA [Suspect]
     Active Substance: USTEKINUMAB
     Indication: PSORIATIC ARTHROPATHY
     Route: 058
     Dates: start: 20140403, end: 20140715
  9. FERROVIN [Concomitant]
     Indication: ANAEMIA
     Route: 042
     Dates: start: 20140416, end: 20140416
  10. IRON [Concomitant]
     Active Substance: IRON
     Route: 042
     Dates: start: 20140416
  11. CEFALEXIN [Concomitant]
     Active Substance: CEPHALEXIN
     Indication: PROPHYLAXIS
     Route: 048
     Dates: start: 20140327, end: 20140408
  12. METHYLPREDNISOLONE [Concomitant]
     Active Substance: METHYLPREDNISOLONE
     Indication: SKIN LESION
     Route: 042
     Dates: start: 20140320, end: 20140326

REACTIONS (3)
  - Bronchopneumonia [Recovered/Resolved]
  - Sepsis [Recovered/Resolved]
  - Staphylococcal infection [Recovered/Resolved]

NARRATIVE: CASE EVENT DATE: 20140414
